FAERS Safety Report 20882071 (Version 1)
Quarter: 2022Q2

REPORT INFORMATION
  Report Type: Spontaneous
  Country: US (occurrence: US)
  Receive Date: 20220527
  Receipt Date: 20220527
  Transmission Date: 20220721
  Serious: Yes (Other)
  Sender: FDA-Public Use
  Company Number: US-CELLTRION INC.-2022US007567

PATIENT

DRUGS (2)
  1. TRUXIMA [Suspect]
     Active Substance: RITUXIMAB-ABBS
     Indication: Multiple sclerosis
     Dosage: THERAPY IS PLANNED FOR 06/08/2022 FOR 1000 MG IV ON DAY 1
     Route: 042
  2. TRUXIMA [Suspect]
     Active Substance: RITUXIMAB-ABBS
     Dosage: THERAPY IS PLANNED FOR 06/22/2022 FOR 1000 MG IV ON DAY 15
     Route: 042

REACTIONS (2)
  - Multiple sclerosis [Unknown]
  - Off label use [Unknown]
